FAERS Safety Report 16916700 (Version 1)
Quarter: 2019Q4

REPORT INFORMATION
  Report Type: Report from Study
  Country: IT (occurrence: IT)
  Receive Date: 20191015
  Receipt Date: 20191015
  Transmission Date: 20200122
  Serious: Yes (Other)
  Sender: FDA-Public Use
  Company Number: IT-AUROBINDO-AUR-APL-2019-064093

PATIENT
  Age: 47 Year
  Sex: Male

DRUGS (2)
  1. OXALIPLATIN. [Suspect]
     Active Substance: OXALIPLATIN
     Indication: GASTROINTESTINAL NEOPLASM
     Dosage: UNK UNK, CYCLICAL (AS A PART OF 6 CYCLES OF XELOX REGIMEN (ADJUVANT THERAPY))
     Route: 065
  2. XELOX [Concomitant]
     Active Substance: CAPECITABINE\OXALIPLATIN
     Indication: GASTROINTESTINAL NEOPLASM
     Dosage: UNK, CYCLICAL (AS A PART OF 6 CYCLES OF XELOX REGIMEN (ADJUVANT THERAPY))
     Route: 065

REACTIONS (10)
  - Portal vein dilatation [Unknown]
  - Non-cirrhotic portal hypertension [Not Recovered/Not Resolved]
  - Varices oesophageal [Unknown]
  - Venous injury [Unknown]
  - Nodular regenerative hyperplasia [Unknown]
  - Splenorenal shunt [Unknown]
  - Portal shunt [Unknown]
  - Splenomegaly [Unknown]
  - Portal hypertension [Unknown]
  - Periportal sinus dilatation [Unknown]
